FAERS Safety Report 8489726-0 (Version None)
Quarter: 2012Q3

REPORT INFORMATION
  Report Type: 
  Country: None (occurrence: None)
  Receive Date: 20120705
  Receipt Date: 20120627
  Transmission Date: 20120928
  Serious: Yes (Death, Hospitalization, Disabling, Other)
  Sender: FDA-Public Use
  Company Number: KZ-GLAXOSMITHKLINE-B0810698A

PATIENT
  Sex: Male

DRUGS (4)
  1. METRONIDAZOLE [Concomitant]
     Indication: GASTROINTESTINAL INFECTION
     Route: 065
     Dates: start: 20120602, end: 20120617
  2. NEUPOGEN [Concomitant]
     Indication: GASTROINTESTINAL INFECTION
     Route: 065
     Dates: start: 20120618, end: 20120620
  3. TIMENTIN [Suspect]
     Indication: GASTROINTESTINAL INFECTION
     Dosage: .2G TWICE PER DAY
     Route: 042
     Dates: start: 20120619, end: 20120619
  4. CEFTRIAXONE [Concomitant]
     Indication: GASTROINTESTINAL INFECTION
     Route: 065
     Dates: start: 20120602, end: 20120617

REACTIONS (2)
  - SEPSIS [None]
  - GASTROINTESTINAL PERFORATION [None]
